FAERS Safety Report 13507995 (Version 1)
Quarter: 2017Q2

REPORT INFORMATION
  Report Type: Spontaneous
  Country: US (occurrence: US)
  Receive Date: 20170503
  Receipt Date: 20170503
  Transmission Date: 20170830
  Serious: Yes (Other)
  Sender: FDA-Public Use
  Company Number: None

PATIENT
  Age: 52 Year
  Sex: Male
  Weight: 83.25 kg

DRUGS (1)
  1. TERBINAFINE TABLETS, USP 250 MG CIPLA [Suspect]
     Active Substance: TERBINAFINE
     Indication: ONYCHOMYCOSIS
     Dosage: ?          QUANTITY:30 TABLET(S);?
     Route: 048
     Dates: start: 20170429, end: 20170429

REACTIONS (8)
  - Respiratory disorder [None]
  - Rash [None]
  - Oropharyngeal pain [None]
  - Dry mouth [None]
  - Dysgeusia [None]
  - Influenza like illness [None]
  - Abnormal dreams [None]
  - Insomnia [None]

NARRATIVE: CASE EVENT DATE: 20170429
